FAERS Safety Report 10388934 (Version 1)
Quarter: 2014Q1

REPORT INFORMATION
  Report Type: Spontaneous
  Country: US (occurrence: None)
  Receive Date: 20140306
  Receipt Date: 20140306
  Transmission Date: 20141002
  Serious: Yes (Hospitalization, Other)
  Sender: FDA-Public Use
  Company Number: 163-21880-13021317

PATIENT
  Age: 81 Year
  Sex: Female

DRUGS (9)
  1. REVLIMID (LENALIDOMIDE) (25 MILLIGRAM, CAPSULES) [Suspect]
     Indication: PLASMA CELL MYELOMA
     Route: 048
     Dates: start: 201008
  2. ASPIRIN (ACETYLSALICYLIC ACID) [Concomitant]
  3. CENTRUM SILVER [Concomitant]
  4. CITALOPRAM HYDROBROMIDE [Concomitant]
  5. FERROUS SULFATE [Concomitant]
  6. FLORASTOR (SACCHAROMYCES BOULARDII) [Concomitant]
  7. LEVOTHYROXINE SODIUM [Concomitant]
  8. LORAZEPAM [Concomitant]
  9. LYRICA (PREGABALIN) [Concomitant]

REACTIONS (3)
  - Pneumonia [None]
  - Haemoglobin decreased [None]
  - Neuropathy peripheral [None]
